FAERS Safety Report 18669297 (Version 1)
Quarter: 2020Q4

REPORT INFORMATION
  Report Type: Spontaneous
  Country: US (occurrence: US)
  Receive Date: 20201228
  Receipt Date: 20201228
  Transmission Date: 20210114
  Serious: Yes (Hospitalization)
  Sender: FDA-Public Use
  Company Number: US-BAUSCH-BL-2020-038494

PATIENT
  Age: 19 Year
  Sex: Female
  Weight: 67 kg

DRUGS (1)
  1. BUPROPION. [Suspect]
     Active Substance: BUPROPION
     Indication: SUICIDE ATTEMPT
     Dosage: ESTIMATED FIFTY-THREE 150-MG BUPROPION SUSTAINED-RELEASE TABLETS (MAXIMUM DOSE 7.95 G) TOTAL
     Route: 048

REACTIONS (3)
  - Serotonin syndrome [Recovering/Resolving]
  - Suicide attempt [Unknown]
  - Intentional overdose [Unknown]
